FAERS Safety Report 19958705 (Version 1)
Quarter: 2021Q4

REPORT INFORMATION
  Report Type: Spontaneous
  Country: US (occurrence: US)
  Receive Date: 20211015
  Receipt Date: 20211015
  Transmission Date: 20220304
  Serious: No
  Sender: FDA-Public Use
  Company Number: US-MYLANLABS-2021M1069103

PATIENT
  Sex: Female
  Weight: 59 kg

DRUGS (1)
  1. ESTRADIOL TRANSDERMAL SYSTEM [Suspect]
     Active Substance: ESTRADIOL
     Indication: Contraception
     Dosage: 0.1 MILLIGRAM, QD
     Route: 062

REACTIONS (3)
  - Breast tenderness [Unknown]
  - Off label use [Unknown]
  - Wrong technique in product usage process [Unknown]
